FAERS Safety Report 20661685 (Version 1)
Quarter: 2022Q2

REPORT INFORMATION
  Report Type: Report from Study
  Country: IE (occurrence: IE)
  Receive Date: 20220401
  Receipt Date: 20220401
  Transmission Date: 20220721
  Serious: Yes (Death)
  Sender: FDA-Public Use
  Company Number: IE-SUN PHARMACEUTICAL INDUSTRIES LTD-2022R1-331129

PATIENT

DRUGS (1)
  1. DOXORUBICIN [Suspect]
     Active Substance: DOXORUBICIN
     Indication: Anaplastic thyroid cancer
     Dosage: 20 MILLIGRAM/SQ. METER, WEEKLY
     Route: 065

REACTIONS (5)
  - Disease recurrence [Fatal]
  - Dermatitis [Unknown]
  - Dysphagia [Unknown]
  - Fatigue [Unknown]
  - Anaemia [Unknown]
